FAERS Safety Report 22102059 (Version 3)
Quarter: 2023Q2

REPORT INFORMATION
  Report Type: Report from Study
  Country: US (occurrence: US)
  Receive Date: 20230316
  Receipt Date: 20230511
  Transmission Date: 20230721
  Serious: Yes (Other)
  Sender: FDA-Public Use
  Company Number: US-002147023-NVSC2023US055747

PATIENT
  Sex: Female

DRUGS (1)
  1. KISQALI [Suspect]
     Active Substance: RIBOCICLIB
     Indication: Product used for unknown indication
     Dosage: UNK
     Route: 048

REACTIONS (16)
  - Neuropathy peripheral [Unknown]
  - Adverse drug reaction [Unknown]
  - Blister [Unknown]
  - Gait disturbance [Unknown]
  - Laboratory test abnormal [Unknown]
  - Taste disorder [Unknown]
  - Food aversion [Unknown]
  - Axillary mass [Unknown]
  - Onychoclasis [Unknown]
  - Pain in extremity [Unknown]
  - Peripheral swelling [Unknown]
  - Fatigue [Unknown]
  - Back pain [Unknown]
  - Diarrhoea [Unknown]
  - White blood cell count decreased [Unknown]
  - Red blood cell count decreased [Unknown]
